FAERS Safety Report 6610395-6 (Version None)
Quarter: 2010Q1

REPORT INFORMATION
  Report Type: 
  Country: None (occurrence: None)
  Receive Date: 20100302
  Receipt Date: 20100129
  Transmission Date: 20100710
  Serious: No
  Sender: FDA-Public Use
  Company Number: US-BAYER-201012829NA

PATIENT
  Sex: Male
  Weight: 76 kg

DRUGS (1)
  1. ULTRAVIST 370 [Suspect]
     Indication: ANGIOGRAM CEREBRAL
     Dosage: AS USED: 80 ML  UNIT DOSE: 500 ML
     Route: 042

REACTIONS (2)
  - PRURITUS [None]
  - URTICARIA [None]
